FAERS Safety Report 20865573 (Version 1)
Quarter: 2022Q2

REPORT INFORMATION
  Report Type: Spontaneous
  Country: GB (occurrence: GB)
  Receive Date: 20220524
  Receipt Date: 20220524
  Transmission Date: 20220721
  Serious: Yes (Other)
  Sender: FDA-Public Use
  Company Number: GB-MHRA-EMIS-11275-2c72d80c-1db0-427a-a412-5cc1abe6caaa

PATIENT
  Age: 5 Year
  Sex: Female
  Weight: 23.3 kg

DRUGS (6)
  1. MONTELUKAST [Suspect]
     Active Substance: MONTELUKAST SODIUM
     Indication: Product used for unknown indication
     Dosage: 4 MILLIGRAM, ONCE A DAY (AT NIGHT)
     Route: 065
     Dates: start: 20220323
  2. AMOXICILLIN [Concomitant]
     Active Substance: AMOXICILLIN
     Indication: Ear pain
     Dosage: 5 MILLILITER, 3 TIMES A DAY
     Route: 048
     Dates: start: 20220217, end: 20220318
  3. AMOXICILLIN [Concomitant]
     Active Substance: AMOXICILLIN
     Dosage: 10 MILLILITER, 3 TIMES A DAY
     Route: 048
     Dates: start: 20220328, end: 20220426
  4. BECLOMETHASONE DIPROPIONATE [Concomitant]
     Active Substance: BECLOMETHASONE DIPROPIONATE
     Indication: Product used for unknown indication
     Dosage: 2 DOSAGE FORM, TWO TIMES A DAY (VIA SPACER)
     Route: 055
     Dates: start: 20220223
  5. LORATADINE [Concomitant]
     Active Substance: LORATADINE
     Indication: Product used for unknown indication
     Dosage: 5 MILLILITER, ONCE A DAY(AS NEEDED)
     Route: 065
     Dates: start: 20220323
  6. ALBUTEROL [Concomitant]
     Active Substance: ALBUTEROL
     Indication: Product used for unknown indication
     Dosage: 2 DOSAGE FORM (AS NECESSARY)
     Route: 055
     Dates: start: 20220302

REACTIONS (3)
  - Crying [Unknown]
  - Depressed mood [Unknown]
  - Nightmare [Unknown]

NARRATIVE: CASE EVENT DATE: 20220418
